FAERS Safety Report 8073465-4 (Version None)
Quarter: 2012Q1

REPORT INFORMATION
  Report Type: 
  Country: None (occurrence: None)
  Receive Date: 20120126
  Receipt Date: 20120126
  Transmission Date: 20120608
  Serious: Yes (Other)
  Sender: FDA-Public Use
  Company Number: None

PATIENT
  Age: 63 Year
  Sex: Male
  Weight: 133.8 kg

DRUGS (1)
  1. METFORMIN HYDROCHLORIDE [Suspect]
     Indication: DIABETES MELLITUS
     Dosage: 2
     Route: 048
     Dates: start: 20111215, end: 20120125

REACTIONS (7)
  - FATIGUE [None]
  - CONFUSIONAL STATE [None]
  - VOMITING [None]
  - NAUSEA [None]
  - PRODUCT SUBSTITUTION ISSUE [None]
  - BLOOD GLUCOSE INCREASED [None]
  - HYPERMETROPIA [None]
